FAERS Safety Report 11936640 (Version 1)
Quarter: 2016Q1

REPORT INFORMATION
  Report Type: Spontaneous
  Country: US (occurrence: US)
  Receive Date: 20160121
  Receipt Date: 20160121
  Transmission Date: 20160526
  Serious: Yes (Hospitalization)
  Sender: FDA-Public Use
  Company Number: US-SA-2016SA008829

PATIENT
  Sex: Male

DRUGS (3)
  1. SOLOSTAR [Concomitant]
     Active Substance: DEVICE
  2. APIDRA SOLOSTAR [Suspect]
     Active Substance: INSULIN GLULISINE
     Route: 065
  3. APIDRA SOLOSTAR [Suspect]
     Active Substance: INSULIN GLULISINE
     Route: 065

REACTIONS (1)
  - Hospitalisation [Unknown]

NARRATIVE: CASE EVENT DATE: 2014
